FAERS Safety Report 10261591 (Version 2)
Quarter: 2015Q1

REPORT INFORMATION
  Report Type: Report from Study
  Country: KR (occurrence: KR)
  Receive Date: 20140626
  Receipt Date: 20150213
  Transmission Date: 20150720
  Serious: Yes (Hospitalization)
  Sender: FDA-Public Use
  Company Number: KR-SA-2014SA081025

PATIENT
  Age: 55 Year
  Sex: Female
  Weight: 58 kg

DRUGS (1)
  1. LANTUS [Suspect]
     Active Substance: INSULIN GLARGINE
     Indication: DIABETES MELLITUS
     Dosage: 18-20 U
     Route: 058

REACTIONS (4)
  - Weight decreased [Unknown]
  - Stomatitis [Unknown]
  - Diabetes mellitus inadequate control [Unknown]
  - Aphthous stomatitis [Not Recovered/Not Resolved]

NARRATIVE: CASE EVENT DATE: 2014
